FAERS Safety Report 14554517 (Version 5)
Quarter: 2018Q2

REPORT INFORMATION
  Report Type: Report from Study
  Country: FR (occurrence: FR)
  Receive Date: 20180220
  Receipt Date: 20180607
  Transmission Date: 20180711
  Serious: Yes (Hospitalization, Other)
  Sender: FDA-Public Use
  Company Number: FR-TEVA-2018-FR-857632

PATIENT
  Age: 49 Year
  Sex: Female
  Weight: 66 kg

DRUGS (9)
  1. FLUOROURACIL. [Suspect]
     Active Substance: FLUOROURACIL
     Dosage: ON 23/AUG/2016: LAST ADMINISTRATION OF 5-FU (3RD CYCLE) BEFORE ONSET OF SAE.
     Route: 040
     Dates: start: 20160726
  2. FLUOROURACIL. [Suspect]
     Active Substance: FLUOROURACIL
     Dosage: ON 23/AUG/2016: LAST ADMINISTRATION OF 5-FU (3RD CYCLE) BEFORE ONSET OF SAE
     Route: 041
     Dates: start: 20160726
  3. FLUOROURACIL. [Suspect]
     Active Substance: FLUOROURACIL
     Indication: COLORECTAL CANCER METASTATIC
     Dosage: ON 23/AUG/2016: LAST ADMINISTRATION OF 5-FU (3RD CYCLE) BEFORE ONSET OF SAE.
     Route: 041
     Dates: start: 20160726
  4. PEGYLATED LIPOSOMAL IRINOTECAN [Suspect]
     Active Substance: IRINOTECAN HYDROCHLORIDE
     Indication: OFF LABEL USE
     Route: 065
  5. FLUOROURACIL. [Suspect]
     Active Substance: FLUOROURACIL
     Dosage: ON 23/AUG/2016: LAST ADMINISTRATION OF 5-FU (3RD CYCLE) BEFORE ONSET OF SAE
     Route: 040
     Dates: start: 20160726
  6. OXALIPLATIN INJECTION 50MG/10 ML+100MG/20ML [Suspect]
     Active Substance: OXALIPLATIN
     Indication: COLORECTAL CANCER METASTATIC
     Dosage: ON 23/AUG/2016: LAST ADMINISTRATION OF OXALIPLATINE (3RD CYCLE) BEFORE ONSET OF SAE.
     Route: 042
     Dates: start: 20160726
  7. AVASTIN [Suspect]
     Active Substance: BEVACIZUMAB
     Indication: COLORECTAL CANCER METASTATIC
     Dosage: ON 23/AUG/2016: LAST ADMINISTRATION OF BEVACIZUMAB (2ND CYCLE) BEFORE ONSET OF SAE.
     Route: 042
     Dates: start: 20160809
  8. IRINOTECAN [Suspect]
     Active Substance: IRINOTECAN
     Indication: COLORECTAL CANCER METASTATIC
     Dosage: ON 23/AUG/2016: LAST ADMINISTRATION OF IRINOTECAN (3RD CYCLE) BEFORE ONSET OF SAE.
     Route: 042
     Dates: start: 20160726
  9. IRINOTECAN [Suspect]
     Active Substance: IRINOTECAN
     Indication: OFF LABEL USE
     Route: 065

REACTIONS (4)
  - Intestinal obstruction [Recovered/Resolved]
  - Off label use [Unknown]
  - Enterocutaneous fistula [Recovered/Resolved]
  - Ascites [Recovered/Resolved]

NARRATIVE: CASE EVENT DATE: 20160830
